FAERS Safety Report 19619816 (Version 1)
Quarter: 2021Q3

REPORT INFORMATION
  Report Type: Spontaneous
  Country: US (occurrence: US)
  Receive Date: 20210728
  Receipt Date: 20210728
  Transmission Date: 20211014
  Serious: No
  Sender: FDA-Public Use
  Company Number: US-ROCHE-2746941

PATIENT
  Age: 52 Year
  Sex: Female

DRUGS (2)
  1. XELODA [Suspect]
     Active Substance: CAPECITABINE
     Indication: PRODUCT USED FOR UNKNOWN INDICATION
     Dosage: ONGOING: NO 2500MG IN THE MORNING AND 2000MG IN THE EVENING FOR 14 DAYS ON AND 7 DAYS OFF^
     Route: 048
     Dates: start: 202006
  2. XELODA [Suspect]
     Active Substance: CAPECITABINE
     Dosage: ONGOING: YES  2000MG IN THE MORNING AND 2000MG IN THE EVENING FOR 14 DAYS ON AND 7 DAYS OFF^
     Route: 048
     Dates: start: 202006

REACTIONS (1)
  - Palmar-plantar erythrodysaesthesia syndrome [Recovered/Resolved]

NARRATIVE: CASE EVENT DATE: 202008
